FAERS Safety Report 21733340 (Version 1)
Quarter: 2022Q4

REPORT INFORMATION
  Report Type: Spontaneous
  Country: US (occurrence: US)
  Receive Date: 20221215
  Receipt Date: 20221215
  Transmission Date: 20230113
  Serious: No
  Sender: FDA-Public Use
  Company Number: US-SA-SAC20221215000162

PATIENT
  Sex: Female

DRUGS (1)
  1. DUPIXENT [Suspect]
     Active Substance: DUPILUMAB
     Indication: Peripheral venous disease
     Dosage: 1 INJECT 600MG (2 PENS) FREQ. NOT REPORTED
     Route: 058

REACTIONS (2)
  - Pain [Unknown]
  - Product use in unapproved indication [Unknown]
